FAERS Safety Report 5611285-8 (Version None)
Quarter: 2008Q1

REPORT INFORMATION
  Report Type: 
  Country: None (occurrence: None)
  Receive Date: 20080128
  Receipt Date: 20080121
  Transmission Date: 20080703
  Serious: Yes (Disabling)
  Sender: FDA-Public Use
  Company Number: OSCN-NO-0801S-0031

PATIENT
  Age: 60 Year
  Sex: Female

DRUGS (15)
  1. OMNISCAN [Suspect]
     Indication: ARTHRITIS
     Dosage: 15 ML, SINGLE DOSE, I.V.
     Route: 042
     Dates: start: 20050215, end: 20050215
  2. OMNISCAN [Suspect]
     Indication: ARTHRITIS
     Dosage: 15 ML, SINGLE DOSE, I.V.
     Route: 042
     Dates: start: 20050218, end: 20050218
  3. OMNISCAN [Suspect]
     Indication: ARTHRITIS
     Dosage: 15 ML, SINGLE DOSE, I.V.
     Route: 042
     Dates: start: 20050225, end: 20050225
  4. OMNISCAN [Suspect]
     Indication: ARTHRITIS
     Dosage: 15 ML, SINGLE DOSE, I.V.
     Route: 042
     Dates: start: 20050419, end: 20050419
  5. CICLOSPORIN (SANDIUMMUN) [Concomitant]
  6. PREDNISOLONE (SPIRICORT) [Concomitant]
  7. PANTOPRAZOLE SODIUM (PANTOZOL) [Concomitant]
  8. ETILEFRINE HYDROCHLORIDE (EFFORTIL) [Concomitant]
  9. PHENPROCOUMON (MARCOUMAR) [Concomitant]
  10. ACETAMINOPHEN [Concomitant]
  11. TROASEMIDE SODIUM (TOREM) [Concomitant]
  12. ATORVASTATIN CALCIUM (SORTIS) [Concomitant]
  13. INSULIN HUMALOG MIX [Concomitant]
  14. DIFLUCAN [Concomitant]
  15. LEVOTHYROXINE (ELTROXIN) [Concomitant]

REACTIONS (4)
  - CANDIDIASIS [None]
  - FUNGAL PERITONITIS [None]
  - NEPHROGENIC SYSTEMIC FIBROSIS [None]
  - NO THERAPEUTIC RESPONSE [None]
